FAERS Safety Report 17578198 (Version 1)
Quarter: 2020Q1

REPORT INFORMATION
  Report Type: Spontaneous
  Country: CA (occurrence: CA)
  Receive Date: 20200324
  Receipt Date: 20200324
  Transmission Date: 20200409
  Serious: Yes (Other)
  Sender: FDA-Public Use
  Company Number: NVSC2020CA078234

PATIENT
  Age: 82 Year
  Sex: Male

DRUGS (2)
  1. TELMISARTAN. [Suspect]
     Active Substance: TELMISARTAN
     Indication: PRODUCT USED FOR UNKNOWN INDICATION
     Dosage: 80 MG
     Route: 065
  2. SANDOSTATIN LAR DEPOT [Suspect]
     Active Substance: OCTREOTIDE ACETATE
     Indication: CARCINOID TUMOUR
     Dosage: 30 MG, QMO
     Route: 030

REACTIONS (12)
  - Blood pressure systolic increased [Unknown]
  - Hypoaesthesia [Unknown]
  - Erythema [Unknown]
  - Oedema [Unknown]
  - Weight decreased [Unknown]
  - Diarrhoea [Unknown]
  - Ingrowing nail [Unknown]
  - Peripheral swelling [Unknown]
  - Deafness [Unknown]
  - Paraesthesia [Unknown]
  - Abnormal faeces [Unknown]
  - Joint swelling [Unknown]
